FAERS Safety Report 8017395-2 (Version None)
Quarter: 2012Q1

REPORT INFORMATION
  Report Type: 
  Country: None (occurrence: None)
  Receive Date: 20120102
  Receipt Date: 20080818
  Transmission Date: 20120608
  Serious: Yes (Life-Threatening)
  Sender: FDA-Public Use
  Company Number: DE-SANTEN INC.-INC-11-000191

PATIENT
  Age: 66 Year
  Sex: Male

DRUGS (3)
  1. INFLANEFRAN FORTE [Concomitant]
  2. ALLERGAN EYE DROPS [Concomitant]
  3. LEVOFLOXACIN [Suspect]
     Indication: ANTIBIOTIC PROPHYLAXIS
     Route: 047
     Dates: start: 20080813, end: 20080817

REACTIONS (3)
  - OCULAR HYPERAEMIA [None]
  - DYSPNOEA [None]
  - EYE IRRITATION [None]
